FAERS Safety Report 4302191-X (Version None)
Quarter: 2004Q1

REPORT INFORMATION
  Report Type: 
  Country: None (occurrence: None)
  Receive Date: 20040126
  Receipt Date: 20031008
  Transmission Date: 20041129
  Serious: No
  Sender: FDA-Public Use
  Company Number: USA031049347

PATIENT
  Age: 9 Year
  Sex: Male
  Weight: 41 kg

DRUGS (1)
  1. STRATTERA [Suspect]
     Indication: NERVOUSNESS
     Dosage: 20 MG/1 IN THE EVENING
     Dates: start: 20030908

REACTIONS (2)
  - ABNORMAL BEHAVIOUR [None]
  - INSOMNIA [None]
